FAERS Safety Report 10073799 (Version 1)
Quarter: 2014Q2

REPORT INFORMATION
  Report Type: Spontaneous
  Country: US (occurrence: US)
  Receive Date: 20140411
  Receipt Date: 20140411
  Transmission Date: 20141212
  Serious: Yes (Other)
  Sender: FDA-Public Use
  Company Number: PHHY2014US044103

PATIENT
  Age: 40 Year
  Sex: Female

DRUGS (8)
  1. SENNOSIDE A+B [Suspect]
     Indication: CONSTIPATION
  2. BETAMETHASONE [Suspect]
     Indication: MATERNAL THERAPY TO ENHANCE FOETAL LUNG MATURITY
  3. MAGNESIUM SULFATE [Suspect]
     Indication: UTERINE HYPOTONUS
  4. MAGNESIUM SULFATE [Suspect]
     Indication: PROPHYLAXIS
  5. NIFEDIPINE [Suspect]
     Indication: PREMATURE LABOUR
  6. BISACODYL [Suspect]
     Indication: CONSTIPATION
  7. INDOCIN [Suspect]
  8. COLACE [Suspect]
     Indication: CONSTIPATION

REACTIONS (8)
  - Premature labour [Unknown]
  - Uterine rupture [Unknown]
  - Abdominal pain [Unknown]
  - Haemorrhage [Unknown]
  - Eclampsia [Unknown]
  - Blood pressure increased [Unknown]
  - Liver function test abnormal [Unknown]
  - Maternal exposure during pregnancy [Unknown]
